FAERS Safety Report 13879440 (Version 1)
Quarter: 2017Q3

REPORT INFORMATION
  Report Type: Spontaneous
  Country: US (occurrence: US)
  Receive Date: 20170817
  Receipt Date: 20170817
  Transmission Date: 20171127
  Serious: No
  Sender: FDA-Public Use
  Company Number: US-TEIKOKU PHARMA USA-TPU2017-00423

PATIENT
  Sex: Female
  Weight: 88.53 kg

DRUGS (3)
  1. LIDODERM [Suspect]
     Active Substance: LIDOCAINE
     Indication: ARTHRITIS
     Dosage: TAKES UP TO THREE PATCHES, CUT INTO SMALLER PIECES AND APPLIES ALL OVER BODY FOR 8 HOURS
     Route: 061
  2. LIDODERM [Suspect]
     Active Substance: LIDOCAINE
     Indication: FIBROMYALGIA
  3. LIDODERM [Suspect]
     Active Substance: LIDOCAINE
     Indication: SPINAL ROD INSERTION

REACTIONS (1)
  - Expired product administered [Unknown]
